FAERS Safety Report 9232055 (Version 1)
Quarter: 2013Q2

REPORT INFORMATION
  Report Type: Spontaneous
  Country: US (occurrence: US)
  Receive Date: 20130415
  Receipt Date: 20130415
  Transmission Date: 20140414
  Serious: Yes (Other)
  Sender: FDA-Public Use
  Company Number: US-PFIZER INC-2013113480

PATIENT
  Age: 91 Year
  Sex: Male
  Weight: 72.56 kg

DRUGS (1)
  1. DETROL LA [Suspect]
     Indication: MICTURITION DISORDER
     Dosage: UNK
     Dates: start: 20130408

REACTIONS (1)
  - Somnolence [Unknown]
